FAERS Safety Report 6206109-4 (Version None)
Quarter: 2009Q2

REPORT INFORMATION
  Report Type: 
  Country: None (occurrence: None)
  Receive Date: 20090526
  Receipt Date: 20090512
  Transmission Date: 20091009
  Serious: Yes (Other)
  Sender: FDA-Public Use
  Company Number: US-1169546

PATIENT

DRUGS (1)
  1. TRIESENCE [Suspect]
     Dosage: INTRAOCULAR
     Route: 031

REACTIONS (2)
  - POST PROCEDURAL COMPLICATION [None]
  - VITRITIS [None]
